FAERS Safety Report 6432990-X (Version None)
Quarter: 2009Q4

REPORT INFORMATION
  Report Type: 
  Country: None (occurrence: None)
  Receive Date: 20091109
  Receipt Date: 20091023
  Transmission Date: 20100525
  Serious: No
  Sender: FDA-Public Use
  Company Number: US-ASTRAZENECA-2009SE22380

PATIENT
  Age: 19 Year
  Sex: Male

DRUGS (3)
  1. SEROQUEL XR [Suspect]
     Route: 048
     Dates: end: 20091017
  2. SEROQUEL XR [Suspect]
     Route: 048
     Dates: start: 20091017
  3. ANTI-DEPRESSANT [Concomitant]

REACTIONS (1)
  - NEUTROPENIA [None]
